FAERS Safety Report 5952346-3 (Version None)
Quarter: 2008Q4

REPORT INFORMATION
  Report Type: 
  Country: None (occurrence: None)
  Receive Date: 20081113
  Receipt Date: 20081104
  Transmission Date: 20090506
  Serious: Yes (Hospitalization)
  Sender: FDA-Public Use
  Company Number: SE-WATSON-2008-06523

PATIENT
  Age: 17 Year
  Sex: Female
  Weight: 45 kg

DRUGS (1)
  1. FIORINAL [Suspect]
     Indication: SUICIDE ATTEMPT
     Dosage: 266 MG/KG, UNK
     Route: 048

REACTIONS (3)
  - BLOOD LACTIC ACID INCREASED [None]
  - HYPOKALAEMIA [None]
  - POISONING [None]
